FAERS Safety Report 9055362 (Version 3)
Quarter: 2013Q2

REPORT INFORMATION
  Report Type: Spontaneous
  Country: US (occurrence: US)
  Receive Date: 20130206
  Receipt Date: 20130506
  Transmission Date: 20140414
  Serious: Yes (Hospitalization)
  Sender: FDA-Public Use
  Company Number: US-BRISTOL-MYERS SQUIBB COMPANY-17328402

PATIENT
  Age: 85 Year
  Sex: Male
  Weight: 75.28 kg

DRUGS (6)
  1. YERVOY [Suspect]
     Indication: MALIGNANT MELANOMA
     Dosage: THIRD DOSE 07JAN13?230MG
     Route: 042
     Dates: start: 20121126, end: 20130107
  2. YERVOY [Suspect]
     Indication: METASTASES TO LUNG
     Dosage: THIRD DOSE 07JAN13?230MG
     Route: 042
     Dates: start: 20121126, end: 20130107
  3. NITROSTAT [Concomitant]
  4. COUMADIN [Concomitant]
  5. ACETYLSALICYLIC ACID [Concomitant]
  6. SOSORBIDE DINITRATE [Concomitant]

REACTIONS (1)
  - Myocardial infarction [Recovering/Resolving]
